FAERS Safety Report 9472792 (Version 1)
Quarter: 2013Q3

REPORT INFORMATION
  Report Type: Spontaneous
  Country: US (occurrence: US)
  Receive Date: 20130823
  Receipt Date: 20130823
  Transmission Date: 20140515
  Serious: No
  Sender: FDA-Public Use
  Company Number: US-PFIZER INC-2013243215

PATIENT
  Age: 69 Year
  Sex: Female
  Weight: 70.3 kg

DRUGS (3)
  1. LYRICA [Suspect]
     Indication: POST HERPETIC NEURALGIA
     Dosage: 50 MG, 2X/DAY
     Route: 048
     Dates: start: 20130818
  2. VICODIN [Suspect]
     Dosage: UNK
  3. VALTREX [Concomitant]
     Indication: HERPES ZOSTER
     Dosage: UNK

REACTIONS (11)
  - Pruritus [Not Recovered/Not Resolved]
  - Pain [Not Recovered/Not Resolved]
  - Dizziness [Unknown]
  - Insomnia [Unknown]
  - Staring [Unknown]
  - Somnolence [Unknown]
  - Fatigue [Unknown]
  - Paraesthesia [Unknown]
  - Headache [Unknown]
  - Catatonia [Unknown]
  - Feeling abnormal [Unknown]
